FAERS Safety Report 4837684-X (Version None)
Quarter: 2005Q4

REPORT INFORMATION
  Report Type: 
  Country: None (occurrence: None)
  Receive Date: 20051128
  Receipt Date: 20050916
  Transmission Date: 20060501
  Serious: Yes (Hospitalization, Disabling)
  Sender: FDA-Public Use
  Company Number: US-MERCK-0509USA02710

PATIENT
  Age: 58 Year
  Sex: Female
  Weight: 73 kg

DRUGS (5)
  1. VIOXX [Suspect]
     Indication: ARTHRITIS
     Route: 048
     Dates: start: 20000128, end: 20030601
  2. PLAQUENIL [Concomitant]
     Indication: RHEUMATOID ARTHRITIS
     Route: 065
  3. DARVOCET-N 100 [Concomitant]
     Indication: RHEUMATOID ARTHRITIS
     Route: 065
  4. SYNTHROID [Concomitant]
     Indication: THYROID DISORDER
     Route: 065
  5. ATROVENT [Concomitant]
     Indication: DYSPNOEA
     Route: 065

REACTIONS (8)
  - ARTHRITIS [None]
  - CHRONIC OBSTRUCTIVE PULMONARY DISEASE [None]
  - DYSPNOEA [None]
  - MYOCARDIAL INFARCTION [None]
  - OEDEMA PERIPHERAL [None]
  - PERONEAL NERVE PALSY [None]
  - PNEUMONIA [None]
  - SYNOVITIS [None]
